FAERS Safety Report 9915903 (Version 1)
Quarter: 2014Q1

REPORT INFORMATION
  Report Type: Spontaneous
  Country: US (occurrence: None)
  Receive Date: 20140219
  Receipt Date: 20140219
  Transmission Date: 20141002
  Serious: Yes (Other)
  Sender: FDA-Public Use
  Company Number: None

PATIENT
  Age: 52 Year
  Sex: Female
  Weight: 74.84 kg

DRUGS (1)
  1. NEOMYCIN AND POLYMYXIN B SULFATE [Suspect]
     Indication: OCULAR HYPERAEMIA
     Route: 047
     Dates: start: 20140208, end: 20140209

REACTIONS (4)
  - Nystagmus [None]
  - Vertigo [None]
  - Fear [None]
  - Balance disorder [None]
